FAERS Safety Report 9069083 (Version 1)
Quarter: 2013Q1

REPORT INFORMATION
  Report Type: Spontaneous
  Country: US (occurrence: None)
  Receive Date: 20130213
  Receipt Date: 20130213
  Transmission Date: 20140127
  Serious: Yes (Other)
  Sender: FDA-Public Use
  Company Number: None

PATIENT
  Age: 61 Year
  Sex: Female
  Weight: 58.97 kg

DRUGS (2)
  1. PREMPRO, 0.625/2.5MG, PFIZER/WYETH [Suspect]
     Indication: HOT FLUSH
     Route: 048
     Dates: start: 20130201, end: 20130203
  2. PREMPRO, 0.625/2.5MG, PFIZER/WYETH [Suspect]
     Indication: VULVOVAGINAL DRYNESS
     Route: 048
     Dates: start: 20130201, end: 20130203

REACTIONS (5)
  - Product label issue [None]
  - Product quality issue [None]
  - Asthma [None]
  - Breast pain [None]
  - Malaise [None]
